FAERS Safety Report 18433080 (Version 3)
Quarter: 2020Q4

REPORT INFORMATION
  Report Type: Spontaneous
  Country: CO (occurrence: CO)
  Receive Date: 20201027
  Receipt Date: 20201103
  Transmission Date: 20210114
  Serious: Yes (Life-Threatening, Hospitalization, Other)
  Sender: FDA-Public Use
  Company Number: CO-SA-2020SA301845

PATIENT

DRUGS (10)
  1. CAPECITABINE. [Concomitant]
     Active Substance: CAPECITABINE
     Indication: METASTASES TO LIVER
  2. CISPLATIN. [Concomitant]
     Active Substance: CISPLATIN
     Indication: HEPATIC CANCER METASTATIC
  3. OXALIPLATIN. [Suspect]
     Active Substance: OXALIPLATIN
     Indication: METASTASES TO LIVER
  4. GEMCITABINE HYDROCHLORIDE. [Suspect]
     Active Substance: GEMCITABINE HYDROCHLORIDE
     Indication: HEPATIC CANCER METASTATIC
  5. CAPECITABINE. [Concomitant]
     Active Substance: CAPECITABINE
     Indication: GALLBLADDER CANCER STAGE IV
     Dosage: UNK
  6. CAPECITABINE. [Concomitant]
     Active Substance: CAPECITABINE
     Indication: DISEASE PROGRESSION
  7. OXALIPLATIN. [Suspect]
     Active Substance: OXALIPLATIN
     Indication: GALLBLADDER CANCER STAGE IV
     Dosage: UNK
  8. OXALIPLATIN. [Suspect]
     Active Substance: OXALIPLATIN
     Indication: DISEASE PROGRESSION
  9. CISPLATIN. [Concomitant]
     Active Substance: CISPLATIN
     Indication: GALLBLADDER CANCER
  10. GEMCITABINE HYDROCHLORIDE. [Suspect]
     Active Substance: GEMCITABINE HYDROCHLORIDE
     Indication: GALLBLADDER CANCER

REACTIONS (15)
  - Faeces discoloured [Unknown]
  - Thrombocytopenia [Unknown]
  - Reticulocyte count increased [Unknown]
  - Thrombotic microangiopathy [Unknown]
  - Red blood cell schistocytes present [Unknown]
  - Jaundice [Unknown]
  - Hyperlactacidaemia [Unknown]
  - Neutrophilia [Unknown]
  - Abdominal pain [Unknown]
  - Pallor [Unknown]
  - Acidosis [Unknown]
  - Coagulopathy [Unknown]
  - Haemolytic anaemia [Unknown]
  - Asthenia [Unknown]
  - Anaemia macrocytic [Unknown]
